FAERS Safety Report 6058144-7 (Version None)
Quarter: 2009Q1

REPORT INFORMATION
  Report Type: 
  Country: None (occurrence: None)
  Receive Date: 20090128
  Receipt Date: 20090113
  Transmission Date: 20090719
  Serious: Yes (Death, Life-Threatening, Other)
  Sender: FDA-Public Use
  Company Number: 2008000845

PATIENT
  Age: 60 Year
  Sex: Female

DRUGS (5)
  1. ERLOTINIB (ERLOTINIB HCI) (TABLET) (ERLOTINIB HCI) [Suspect]
     Indication: LUNG ADENOCARCINOMA
     Dosage: (150 MG, QD), ORAL
     Route: 048
     Dates: start: 20080226, end: 20080322
  2. OMEPRAZOLE [Concomitant]
  3. DEPAS (ETIZOLAM) [Concomitant]
  4. NORVASC [Concomitant]
  5. ZOLPIDEM TARTRATE [Concomitant]

REACTIONS (11)
  - ANAEMIA [None]
  - C-REACTIVE PROTEIN INCREASED [None]
  - DIARRHOEA [None]
  - DISEASE PROGRESSION [None]
  - GENERALISED OEDEMA [None]
  - HYPONATRAEMIA [None]
  - LUNG ADENOCARCINOMA [None]
  - MALNUTRITION [None]
  - MASKED FACIES [None]
  - RASH [None]
  - WHITE BLOOD CELL COUNT INCREASED [None]
